FAERS Safety Report 5364466-5 (Version None)
Quarter: 2007Q2

REPORT INFORMATION
  Report Type: 
  Country: None (occurrence: None)
  Receive Date: 20070611
  Receipt Date: 20061114
  Transmission Date: 20071010
  Serious: Yes (Other)
  Sender: FDA-Public Use
  Company Number: USA-2006-0025735

PATIENT
  Age: 21 Year
  Sex: Female

DRUGS (1)
  1. OXYCONTIN [Suspect]
     Indication: DRUG ABUSER
     Dosage: 80 MG, SEE TEXT, INHALATION
     Route: 055
     Dates: start: 20060401, end: 20061110

REACTIONS (4)
  - BACK PAIN [None]
  - DRUG ABUSER [None]
  - MUSCLE TWITCHING [None]
  - PAIN IN EXTREMITY [None]
